FAERS Safety Report 15669262 (Version 1)
Quarter: 2018Q4

REPORT INFORMATION
  Report Type: Spontaneous
  Country: CO (occurrence: CO)
  Receive Date: 20181129
  Receipt Date: 20181129
  Transmission Date: 20190205
  Serious: Yes (Hospitalization, Other)
  Sender: FDA-Public Use
  Company Number: CO-REGENERON PHARMACEUTICALS, INC.-2018-45815

PATIENT

DRUGS (3)
  1. EYLEA [Suspect]
     Active Substance: AFLIBERCEPT
     Indication: RETINAL VEIN OCCLUSION
  2. POVIDONE-IODINE. [Concomitant]
     Active Substance: POVIDONE-IODINE
     Indication: PRODUCT USED FOR UNKNOWN INDICATION
  3. EYLEA [Suspect]
     Active Substance: AFLIBERCEPT
     Indication: MACULAR OEDEMA
     Dosage: 6TH EYLIA INJECTION IN THE LEFT EYE
     Route: 031
     Dates: start: 20181116, end: 20181116

REACTIONS (8)
  - Blindness [Unknown]
  - Vomiting [Unknown]
  - Vision blurred [Unknown]
  - Lacrimation increased [Unknown]
  - Purulent discharge [Unknown]
  - Abdominal pain upper [Unknown]
  - Eye pain [Unknown]
  - Endophthalmitis [Unknown]

NARRATIVE: CASE EVENT DATE: 20181117
